FAERS Safety Report 23314876 (Version 1)
Quarter: 2023Q4

REPORT INFORMATION
  Report Type: Report from Study
  Country: US (occurrence: US)
  Receive Date: 20231219
  Receipt Date: 20231219
  Transmission Date: 20240109
  Serious: No
  Sender: FDA-Public Use
  Company Number: US-HLS-202300986

PATIENT
  Age: 41 Year
  Sex: Male

DRUGS (1)
  1. CLOZAPINE [Suspect]
     Active Substance: CLOZAPINE
     Indication: Product used for unknown indication
     Dosage: 100 MG
     Route: 048

REACTIONS (3)
  - Immunoglobulins increased [Recovered/Resolved]
  - Monocyte count increased [Recovered/Resolved]
  - Neutrophil percentage decreased [Recovered/Resolved]

NARRATIVE: CASE EVENT DATE: 20230802
